FAERS Safety Report 25473383 (Version 2)
Quarter: 2025Q3

REPORT INFORMATION
  Report Type: Spontaneous
  Country: US (occurrence: US)
  Receive Date: 20250624
  Receipt Date: 20250816
  Transmission Date: 20251020
  Serious: No
  Sender: ALEXION PHARMACEUTICALS
  Company Number: US-AstraZeneca-CH-00896637A

PATIENT
  Age: 17 Year
  Sex: Female

DRUGS (1)
  1. KOSELUGO [Suspect]
     Active Substance: SELUMETINIB
     Indication: Astrocytoma

REACTIONS (3)
  - Off label use [Recovering/Resolving]
  - Dermatitis acneiform [Recovering/Resolving]
  - Scar [Recovering/Resolving]
